FAERS Safety Report 21707404 (Version 2)
Quarter: 2024Q2

REPORT INFORMATION
  Report Type: Report from Study
  Country: PR (occurrence: PR)
  Receive Date: 20221209
  Receipt Date: 20240413
  Transmission Date: 20240716
  Serious: No
  Sender: FDA-Public Use
  Company Number: PR-ABBVIE-4193970

PATIENT
  Sex: Female
  Weight: 78.471 kg

DRUGS (2)
  1. HUMIRA [Suspect]
     Active Substance: ADALIMUMAB
     Indication: Psoriatic arthropathy
     Dosage: 40MG/0.4ML
     Route: 058
  2. HUMIRA [Suspect]
     Active Substance: ADALIMUMAB
     Indication: Psoriatic arthropathy
     Route: 058
     Dates: start: 20170320

REACTIONS (2)
  - Psoriasis [Not Recovered/Not Resolved]
  - Rash [Not Recovered/Not Resolved]
